FAERS Safety Report 6957821-0 (Version None)
Quarter: 2010Q3

REPORT INFORMATION
  Report Type: 
  Country: None (occurrence: None)
  Receive Date: 20100831
  Receipt Date: 20100819
  Transmission Date: 20110219
  Serious: Yes (Other)
  Sender: FDA-Public Use
  Company Number: JP-ELI_LILLY_AND_COMPANY-JP201007004259

PATIENT
  Age: 43 Year
  Sex: Female

DRUGS (15)
  1. CYMBALTA [Suspect]
     Indication: DEPRESSION
     Dosage: 20 MG, 2/D
     Route: 048
     Dates: start: 20100601, end: 20100709
  2. CYMBALTA [Suspect]
     Dosage: 20 MG, 3/D
     Route: 048
     Dates: start: 20100710
  3. ZYPREXA [Suspect]
     Indication: DEPRESSION
     Dosage: 2.5 MG, DAILY (1/D)
     Route: 048
     Dates: start: 20100615
  4. VALERIN [Concomitant]
     Dosage: 200 MG, 3/D
     Route: 048
  5. HORIZON [Concomitant]
     Dosage: 2 MG, 3/D
     Route: 048
  6. PAXIL [Concomitant]
     Dosage: 20 MG, DAILY (1/D)
     Route: 048
  7. AKINETON /00079501/ [Concomitant]
     Dosage: UNK, 3/D
  8. MAGMITT [Concomitant]
     Dosage: 330 MG, 2/D
     Route: 048
  9. SENNARIDE [Concomitant]
     Dosage: UNK, 3/D
     Route: 048
  10. EURODIN [Concomitant]
     Dosage: 2 MG, DAILY (1/D)
     Route: 048
  11. ROHYPNOL [Concomitant]
     Dosage: 2 MG, DAILY (1/D)
     Route: 048
  12. ROHYPNOL [Concomitant]
     Dosage: 1 MG, DAILY (1/D)
  13. BENZALIN [Concomitant]
     Dosage: 10 MG, DAILY (1/D)
     Route: 048
  14. LEVOTOMIN [Concomitant]
     Dosage: 5 MG, DAILY (1/D)
     Route: 048
  15. ALDACTONE [Concomitant]
     Dosage: UNK, DAILY (1/D)
     Route: 048

REACTIONS (3)
  - BLOOD MAGNESIUM INCREASED [None]
  - OEDEMA PERIPHERAL [None]
  - OFF LABEL USE [None]
